FAERS Safety Report 8462473-7 (Version None)
Quarter: 2012Q2

REPORT INFORMATION
  Report Type: 
  Country: None (occurrence: None)
  Receive Date: 20120625
  Receipt Date: 20120618
  Transmission Date: 20120825
  Serious: Yes (Hospitalization)
  Sender: FDA-Public Use
  Company Number: JP-ELI_LILLY_AND_COMPANY-JP201206006265

PATIENT
  Sex: Male

DRUGS (1)
  1. HUMATROPE [Suspect]
     Route: 058

REACTIONS (1)
  - WRIST FRACTURE [None]
